FAERS Safety Report 21466442 (Version 1)
Quarter: 2022Q4

REPORT INFORMATION
  Report Type: Other
  Country: US (occurrence: None)
  Receive Date: 20221017
  Receipt Date: 20221017
  Transmission Date: 20230113
  Serious: Yes (Other)
  Sender: FDA-Public Use
  Company Number: US-ROCHE-3198379

PATIENT
  Age: 41 Year
  Sex: Female
  Weight: 86.260 kg

DRUGS (12)
  1. OCREVUS [Suspect]
     Active Substance: OCRELIZUMAB
     Indication: Relapsing-remitting multiple sclerosis
     Dosage: STARTED MAYBE ABOUT 3 YEARS AGO ;ONGOING: NO
     Route: 042
     Dates: start: 2019
  2. OCREVUS [Suspect]
     Active Substance: OCRELIZUMAB
     Dosage: SHE RESTARTED OCREVUS WITH A FULL DOSE ;ONGOING: YES
     Route: 042
     Dates: start: 202206
  3. OCREVUS [Suspect]
     Active Substance: OCRELIZUMAB
     Dosage: 300 MG DAY 1 AND DAY 15, THEN 600 MG EVERY 6 MONTHS
     Route: 042
  4. NORTRIPTYLINE [Concomitant]
     Active Substance: NORTRIPTYLINE
  5. LYRICA [Concomitant]
     Active Substance: PREGABALIN
  6. PFIZER-BIONTECH COVID-19 VACCINE [Concomitant]
     Active Substance: TOZINAMERAN
  7. ZOLOFT [Concomitant]
     Active Substance: SERTRALINE HYDROCHLORIDE
  8. FARXIGA [Concomitant]
     Active Substance: DAPAGLIFLOZIN PROPANEDIOL
  9. ATORVASTATIN [Concomitant]
     Active Substance: ATORVASTATIN
  10. ALBUTEROL [Concomitant]
     Active Substance: ALBUTEROL
  11. TOPIRAMATE [Concomitant]
     Active Substance: TOPIRAMATE
  12. METFORMIN [Concomitant]
     Active Substance: METFORMIN HYDROCHLORIDE

REACTIONS (7)
  - COVID-19 [Not Recovered/Not Resolved]
  - Insomnia [Not Recovered/Not Resolved]
  - Seizure [Not Recovered/Not Resolved]
  - Depression [Not Recovered/Not Resolved]
  - White blood cell count increased [Recovered/Resolved]
  - Immunodeficiency [Recovered/Resolved]
  - Gait disturbance [Not Recovered/Not Resolved]

NARRATIVE: CASE EVENT DATE: 20220101
